FAERS Safety Report 4883264-X (Version None)
Quarter: 2006Q1

REPORT INFORMATION
  Report Type: 
  Country: None (occurrence: None)
  Receive Date: 20060118
  Receipt Date: 20060105
  Transmission Date: 20060701
  Serious: Yes (Other)
  Sender: FDA-Public Use
  Company Number: US-NOVOPROD-249829

PATIENT
  Age: 39 Year
  Sex: Male
  Weight: 73 kg

DRUGS (9)
  1. NOVOLIN 70/30 [Suspect]
     Indication: INSULIN-REQUIRING TYPE II DIABETES MELLITUS
     Dosage: UNKNOWN
     Route: 058
     Dates: start: 20051201, end: 20051231
  2. BETANOL [Concomitant]
     Indication: BLOOD PRESSURE INCREASED
  3. TRICOR [Concomitant]
     Indication: BLOOD CHOLESTEROL INCREASED
  4. ZETIA [Concomitant]
     Indication: BLOOD PRESSURE INCREASED
  5. ATIVAN [Concomitant]
     Indication: NERVOUSNESS
  6. CLONIDINE [Concomitant]
     Indication: BLOOD PRESSURE INCREASED
  7. NADOLOL [Concomitant]
     Indication: BLOOD PRESSURE INCREASED
  8. ALTACE [Concomitant]
     Indication: BLOOD PRESSURE INCREASED
  9. BOTONICS NOS [Concomitant]
     Indication: GASTROOESOPHAGEAL REFLUX DISEASE

REACTIONS (4)
  - BURNING SENSATION [None]
  - ERYTHEMA [None]
  - HYPERSENSITIVITY [None]
  - THROAT TIGHTNESS [None]
